FAERS Safety Report 6328764-0 (Version None)
Quarter: 2009Q3

REPORT INFORMATION
  Report Type: 
  Country: None (occurrence: None)
  Receive Date: 20090826
  Receipt Date: 20090812
  Transmission Date: 20100115
  Serious: Yes (Congenital Anomaly)
  Sender: FDA-Public Use
  Company Number: FR-ASTRAZENECA-2009SE08071

PATIENT

DRUGS (1)
  1. CANDESARTAN CILEXETIL [Suspect]
     Route: 064

REACTIONS (3)
  - DRUG PRESCRIBING ERROR [None]
  - OLIGOHYDRAMNIOS [None]
  - SKULL MALFORMATION [None]
